FAERS Safety Report 16255088 (Version 1)
Quarter: 2019Q2

REPORT INFORMATION
  Report Type: Spontaneous
  Country: US (occurrence: US)
  Receive Date: 20190430
  Receipt Date: 20190430
  Transmission Date: 20190711
  Serious: Yes (Hospitalization)
  Sender: FDA-Public Use
  Company Number: US-TEVA-2019-US-1043726

PATIENT
  Sex: Male
  Weight: 3.5 kg

DRUGS (2)
  1. FRESH FROZEN PLASMA [Concomitant]
     Active Substance: HUMAN PLASMA
     Dosage: DOSE: 10ML/KG
     Route: 065
  2. HEPARIN [Suspect]
     Active Substance: HEPARIN SODIUM
     Indication: INTERRUPTION OF AORTIC ARCH
     Dosage: DOSE: 10 UNITS/KG/HOUR
     Route: 041

REACTIONS (5)
  - Vascular access site haemorrhage [Unknown]
  - Vascular access site bruising [Unknown]
  - Vascular access site haematoma [Unknown]
  - Chromaturia [Unknown]
  - Haemoptysis [Unknown]
